FAERS Safety Report 6219222-2 (Version None)
Quarter: 2009Q2

REPORT INFORMATION
  Report Type: 
  Country: None (occurrence: None)
  Receive Date: 20090605
  Receipt Date: 20090605
  Transmission Date: 20091009
  Serious: Yes (Life-Threatening)
  Sender: FDA-Public Use
  Company Number: None

PATIENT
  Age: 67 Year
  Sex: Male
  Weight: 77.1115 kg

DRUGS (1)
  1. DONEPEZIL HCL [Suspect]
     Indication: DEMENTIA
     Dosage: 10 MG QD PO
     Route: 048
     Dates: start: 20070801, end: 20090519

REACTIONS (3)
  - BRADYCARDIA [None]
  - CARDIAC PACEMAKER INSERTION [None]
  - LOSS OF CONSCIOUSNESS [None]
